FAERS Safety Report 20291939 (Version 1)
Quarter: 2022Q1

REPORT INFORMATION
  Report Type: Spontaneous
  Country: JP (occurrence: JP)
  Receive Date: 20220104
  Receipt Date: 20220104
  Transmission Date: 20220423
  Serious: Yes (Death)
  Sender: FDA-Public Use
  Company Number: JP-HQ SPECIALTY-JP-2021INT000253

PATIENT

DRUGS (3)
  1. CISPLATIN [Suspect]
     Active Substance: CISPLATIN
     Indication: Germ cell cancer
     Dosage: 20 MG/M2, DAYS 1 THROUGH 5 EVERY 3 WEEKS
     Route: 065
  2. ETOPOSIDE [Suspect]
     Active Substance: ETOPOSIDE
     Indication: Germ cell cancer
     Dosage: 100 MG/M2 DAYS 1 THROUGH 5 EVERY 3 WEEKS
     Route: 065
  3. IFOSFAMIDE [Suspect]
     Active Substance: IFOSFAMIDE
     Indication: Germ cell cancer
     Dosage: 1200 MG/M2 DAYS 1 THROUGH 5 EVERY 3 WEEKS
     Route: 065

REACTIONS (1)
  - Leukaemia [Fatal]
